FAERS Safety Report 18321146 (Version 1)
Quarter: 2020Q3

REPORT INFORMATION
  Report Type: Spontaneous
  Country: US (occurrence: US)
  Receive Date: 20200928
  Receipt Date: 20200928
  Transmission Date: 20201103
  Serious: Yes (Other)
  Sender: FDA-Public Use
  Company Number: US-PFIZER INC-2020371201

PATIENT
  Age: 38 Year
  Sex: Female
  Weight: 77.11 kg

DRUGS (9)
  1. KLONOPIN [Concomitant]
     Active Substance: CLONAZEPAM
     Indication: ANXIETY
     Dosage: 1 MG
  2. VENLAFAXINE HCL [Suspect]
     Active Substance: VENLAFAXINE HYDROCHLORIDE
     Indication: DEPRESSION
     Dosage: 50 MG
  3. PRILOSEC [Concomitant]
     Active Substance: OMEPRAZOLE MAGNESIUM
     Indication: ULCER
     Dosage: 40 MG, 1X/DAY
     Route: 048
  4. PROTONIX [OMEPRAZOLE] [Concomitant]
     Active Substance: OMEPRAZOLE
     Dosage: 20 MG, 2X/DAY(STARTED AT ONE AND HAS BEEN INCREASED TO TWO)
     Route: 048
     Dates: start: 20200916
  5. KLONOPIN [Concomitant]
     Active Substance: CLONAZEPAM
     Dosage: 0.5 MG, AS NEEDED (DIRECTED TO TAKE ONE THREE TIMES A DAY BUT BUT IS TAKING AS NEEDED)
     Route: 048
  6. VENLAFAXINE HCL [Suspect]
     Active Substance: VENLAFAXINE HYDROCHLORIDE
     Dosage: 75 MG DAILY IN THE AM
     Route: 048
     Dates: end: 202008
  7. VENLAFAXINE HCL [Suspect]
     Active Substance: VENLAFAXINE HYDROCHLORIDE
     Dosage: 150 MG
  8. ESTRADIOL. [Concomitant]
     Active Substance: ESTRADIOL
     Indication: VAGINAL DISORDER
     Dosage: 2 MG, DAILY
     Route: 067
     Dates: start: 20200428, end: 202006
  9. PROTONIX [OMEPRAZOLE] [Concomitant]
     Active Substance: OMEPRAZOLE
     Indication: ULCER
     Dosage: 20 MG

REACTIONS (6)
  - Diarrhoea [Not Recovered/Not Resolved]
  - Ulcer [Unknown]
  - Abortion spontaneous [Unknown]
  - Anxiety [Not Recovered/Not Resolved]
  - Eating disorder [Not Recovered/Not Resolved]
  - Vomiting [Not Recovered/Not Resolved]

NARRATIVE: CASE EVENT DATE: 202006
